FAERS Safety Report 10512481 (Version 2)
Quarter: 2014Q4

REPORT INFORMATION
  Report Type: Report from Study
  Country: US (occurrence: US)
  Receive Date: 20141011
  Receipt Date: 20141105
  Transmission Date: 20150528
  Serious: Yes (Death)
  Sender: FDA-Public Use
  Company Number: PHEH2014US020178

PATIENT
  Sex: Male

DRUGS (1)
  1. GLEEVEC [Suspect]
     Active Substance: IMATINIB MESYLATE
     Indication: THYMOMA MALIGNANT
     Dosage: 400 MG, QD
     Route: 048

REACTIONS (2)
  - Thymoma malignant [Fatal]
  - Malignant neoplasm progression [Fatal]
